FAERS Safety Report 6780244-4 (Version None)
Quarter: 2010Q2

REPORT INFORMATION
  Report Type: 
  Country: None (occurrence: None)
  Receive Date: 20100618
  Receipt Date: 20100610
  Transmission Date: 20101027
  Serious: Yes (Hospitalization)
  Sender: FDA-Public Use
  Company Number: FR-ROCHE-708850

PATIENT
  Sex: Female

DRUGS (4)
  1. PEGINTERFERON ALFA-2A [Suspect]
     Dosage: DOSE AND FREQUENCY: NOT REPORTED
     Route: 058
     Dates: start: 20051025
  2. GLEEVEC [Suspect]
     Dosage: DATE OF LAST DOSE PRIOR TO SAE: 17 NOVEMBER 2009, ROUTE: PER OS, PERMANENTLY DISCONTINUED
     Route: 048
     Dates: start: 20051222, end: 20091117
  3. IMPLANON [Suspect]
     Indication: DRUG USE FOR UNKNOWN INDICATION
     Dosage: REPORTED AS: HORMONE IMPLANT=IMPLANON 68 MG, DOSE AND FREQUENCY: NOT REPORTED
     Route: 065
     Dates: start: 20060516, end: 20090709
  4. LUDEAL [Concomitant]
     Indication: CONTRACEPTION
     Route: 048
     Dates: end: 20100101

REACTIONS (1)
  - BREAST CANCER [None]
